FAERS Safety Report 10649497 (Version 1)
Quarter: 2014Q4

REPORT INFORMATION
  Report Type: Spontaneous
  Country: US (occurrence: US)
  Receive Date: 20141212
  Receipt Date: 20141212
  Transmission Date: 20150529
  Serious: Yes (Other)
  Sender: FDA-Public Use
  Company Number: US-BAYER-2014-181095

PATIENT
  Age: 59 Year
  Sex: Male

DRUGS (2)
  1. ALEVE [Suspect]
     Active Substance: NAPROXEN SODIUM
  2. MELOXICAM. [Suspect]
     Active Substance: MELOXICAM

REACTIONS (6)
  - Feeling abnormal [Unknown]
  - Drug hypersensitivity [Unknown]
  - Malaise [Unknown]
  - Poisoning [Unknown]
  - Pallor [Unknown]
  - Dizziness [Unknown]
